FAERS Safety Report 14854400 (Version 1)
Quarter: 2018Q2

REPORT INFORMATION
  Report Type: Spontaneous
  Country: US (occurrence: US)
  Receive Date: 20180507
  Receipt Date: 20180507
  Transmission Date: 20180711
  Serious: Yes (Other)
  Sender: FDA-Public Use
  Company Number: US-PFIZER INC-2018184872

PATIENT
  Sex: Female

DRUGS (2)
  1. ZOLOFT [Suspect]
     Active Substance: SERTRALINE HYDROCHLORIDE
     Indication: DEPRESSION
     Dosage: UNK
     Dates: start: 201712
  2. SYNTHROID [Concomitant]
     Active Substance: LEVOTHYROXINE SODIUM
     Indication: HYPOTHYROIDISM
     Dosage: UNK

REACTIONS (7)
  - Suicidal ideation [Unknown]
  - Anxiety [Not Recovered/Not Resolved]
  - Acne [Unknown]
  - Drug effect incomplete [Unknown]
  - Menstrual disorder [Unknown]
  - Condition aggravated [Not Recovered/Not Resolved]
  - Hair growth abnormal [Unknown]
